FAERS Safety Report 5325831-5 (Version None)
Quarter: 2007Q2

REPORT INFORMATION
  Report Type: 
  Country: None (occurrence: None)
  Receive Date: 20070510
  Receipt Date: 20070411
  Transmission Date: 20071010
  Serious: Yes (Other)
  Sender: FDA-Public Use
  Company Number: MEDI-0005032

PATIENT
  Weight: 6.95 kg

DRUGS (7)
  1. SYNAGIS [Suspect]
     Indication: ANTIVIRAL PROPHYLAXIS
     Dosage: 90 MG, INTRAMUSCULAR
     Route: 030
  2. DALAVIT (ERGOCALCIFEROL, ASCORBIC ACID, PYRIDOXINE HYDROCHLORIDE, RETI [Concomitant]
  3. SYTRON (SODIUM FEREDETATE) [Concomitant]
  4. ASPIRIN [Concomitant]
  5. PULMICORT [Concomitant]
  6. ATROVENT [Concomitant]
  7. SALBUTAMOL (SALBUTAMOL) [Concomitant]

REACTIONS (4)
  - ABDOMINAL DISTENSION [None]
  - MALAISE [None]
  - RASH [None]
  - UNEVALUABLE EVENT [None]
